FAERS Safety Report 8584923-8 (Version None)
Quarter: 2012Q3

REPORT INFORMATION
  Report Type: 
  Country: None (occurrence: None)
  Receive Date: 20120810
  Receipt Date: 20120802
  Transmission Date: 20120928
  Serious: No
  Sender: FDA-Public Use
  Company Number: US-BAYER-2012-079261

PATIENT

DRUGS (4)
  1. RELPAX [Suspect]
     Dosage: 1 DF, UNK
  2. ALEVE (CAPLET) [Suspect]
     Indication: MIGRAINE
     Dosage: 2 DF, UNK
  3. EXCEDRIN [ACETYLSALICYLIC ACID,CAFFEINE,SALICYLAMIDE] [Suspect]
     Indication: MIGRAINE
     Dosage: 2 DF, UNK
  4. ANTIEMETICS AND ANTINAUSEANTS [Concomitant]

REACTIONS (1)
  - MIGRAINE [None]
